FAERS Safety Report 16583581 (Version 1)
Quarter: 2019Q3

REPORT INFORMATION
  Report Type: Spontaneous
  Country: US (occurrence: US)
  Receive Date: 20190604
  Receipt Date: 20190604
  Transmission Date: 20191004
  Serious: No
  Sender: FDA-Public Use
  Company Number: None

PATIENT
  Age: 62 Year
  Sex: Female

DRUGS (1)
  1. DUPIXENT [Suspect]
     Active Substance: DUPILUMAB
     Indication: ASTHMA
     Dosage: ?          OTHER DOSE:SEE EVENT;OTHER FREQUENCY:SEE EVENT;?
     Route: 058
     Dates: start: 20190508

REACTIONS (1)
  - Device breakage [None]

NARRATIVE: CASE EVENT DATE: 201905
